FAERS Safety Report 7602049-4 (Version None)
Quarter: 2011Q3

REPORT INFORMATION
  Report Type: 
  Country: None (occurrence: None)
  Receive Date: 20110711
  Receipt Date: 20110628
  Transmission Date: 20111222
  Serious: Yes (Life-Threatening, Hospitalization)
  Sender: FDA-Public Use
  Company Number: AT-CEPHALON-2011003640

PATIENT
  Sex: Female

DRUGS (1)
  1. BENDAMUSTINE HCL (MANUFACTURER UNKNOWN) [Suspect]
     Indication: CHRONIC LYMPHOCYTIC LEUKAEMIA
     Route: 042
     Dates: start: 20090310

REACTIONS (1)
  - LUNG INFILTRATION [None]
